FAERS Safety Report 5813724-6 (Version None)
Quarter: 2008Q3

REPORT INFORMATION
  Report Type: 
  Country: None (occurrence: None)
  Receive Date: 20080717
  Receipt Date: 20080707
  Transmission Date: 20090109
  Serious: Yes (Death)
  Sender: FDA-Public Use
  Company Number: AU-ROCHE-539153

PATIENT
  Age: 34 Year
  Sex: Male

DRUGS (6)
  1. MYCOPHENOLATE MOFETIL [Suspect]
     Indication: RENAL TRANSPLANT
     Route: 065
  2. MYCOPHENOLATE MOFETIL [Suspect]
     Route: 065
  3. CYCLOSPORINE [Suspect]
     Indication: DRUG USE FOR UNKNOWN INDICATION
     Route: 065
  4. PREDNISOLONE [Concomitant]
  5. DILTIAZEM HYDROCHLORIDE [Concomitant]
  6. SULFAMETHOXAZOLE AND TRIMETHOPRIM [Concomitant]

REACTIONS (11)
  - CHILLS [None]
  - COUGH [None]
  - CYTOMEGALOVIRUS INFECTION [None]
  - ERYTHEMA [None]
  - FEBRILE NEUTROPENIA [None]
  - MALAISE [None]
  - OSTEOMYELITIS BACTERIAL [None]
  - OTITIS MEDIA [None]
  - PYREXIA [None]
  - SEPSIS [None]
  - TONGUE ULCERATION [None]
